FAERS Safety Report 10593718 (Version 3)
Quarter: 2016Q2

REPORT INFORMATION
  Report Type: Report from Study
  Country: US (occurrence: US)
  Receive Date: 20141119
  Receipt Date: 20160506
  Transmission Date: 20160815
  Serious: Yes (Other)
  Sender: FDA-Public Use
  Company Number: US-SA-2014SA030642

PATIENT
  Age: 47 Year
  Sex: Female

DRUGS (3)
  1. AUBAGIO [Suspect]
     Active Substance: TERIFLUNOMIDE
     Indication: MULTIPLE SCLEROSIS
     Route: 048
     Dates: start: 20140320, end: 201604
  2. AUBAGIO [Suspect]
     Active Substance: TERIFLUNOMIDE
     Indication: MULTIPLE SCLEROSIS
     Route: 048
     Dates: start: 20140212, end: 20140318
  3. AMITRIPTYLINE [Concomitant]
     Active Substance: AMITRIPTYLINE

REACTIONS (20)
  - Tongue disorder [Not Recovered/Not Resolved]
  - Fall [Unknown]
  - Inappropriate schedule of drug administration [Unknown]
  - Diabetes mellitus [Unknown]
  - Blood glucose increased [Unknown]
  - Swelling face [Unknown]
  - Back pain [Not Recovered/Not Resolved]
  - Asthenia [Not Recovered/Not Resolved]
  - Mobility decreased [Not Recovered/Not Resolved]
  - Renal pain [Not Recovered/Not Resolved]
  - Fatigue [Unknown]
  - Dry mouth [Unknown]
  - Glossodynia [Not Recovered/Not Resolved]
  - Intervertebral disc disorder [Unknown]
  - Dysgeusia [Unknown]
  - Paraesthesia oral [Unknown]
  - Drug dose omission [Unknown]
  - Dysphagia [Unknown]
  - Oropharyngeal pain [Unknown]
  - Extra dose administered [Unknown]

NARRATIVE: CASE EVENT DATE: 20140319
